FAERS Safety Report 14594615 (Version 1)
Quarter: 2018Q1

REPORT INFORMATION
  Report Type: Spontaneous
  Country: ES (occurrence: ES)
  Receive Date: 20180302
  Receipt Date: 20180302
  Transmission Date: 20180509
  Serious: Yes (Other)
  Sender: FDA-Public Use
  Company Number: ES-TEVA-2018-ES-861580

PATIENT
  Age: 51 Year
  Sex: Female

DRUGS (7)
  1. ACTIQ [Suspect]
     Active Substance: FENTANYL CITRATE
     Indication: NEURALGIA
     Dosage: PRESCRIBED ON 06/2016, IF PAIN ACTIQ 200 MAXIMUM 5 PER DAY. NOW TAKES A MEAN OF 40 PER DAY.
     Route: 065
     Dates: start: 20141201
  2. PRISTIQ 100 MG COMPRIMIDOS DE LIBERACION PROLONGADA [Concomitant]
     Dates: end: 201708
  3. TARGIN 10 MG/5 MG COMPRIMIDOS DE LIBERACION PROLONGADA [Concomitant]
     Active Substance: NALOXONE HYDROCHLORIDE\OXYCODONE HYDROCHLORIDE
  4. TARGIN 5 MG/2,5 MG COMPRIMIDOS DE LIBERACION PROLONGADA [Concomitant]
  5. FLUOXETINA CINFA 20 MG CAPSULAS DURAS EFG [Concomitant]
     Active Substance: FLUOXETINE HYDROCHLORIDE
     Dates: start: 201710
  6. NOLOTIL 575 MG CAPSULAS DURAS [Concomitant]
  7. RIVOTRIL 2 MG COMPRIMIDOS [Concomitant]

REACTIONS (2)
  - Dependence [Not Recovered/Not Resolved]
  - Off label use [Not Recovered/Not Resolved]

NARRATIVE: CASE EVENT DATE: 20131201
